FAERS Safety Report 20107769 (Version 1)
Quarter: 2021Q4

REPORT INFORMATION
  Report Type: Spontaneous
  Country: US (occurrence: US)
  Receive Date: 20211124
  Receipt Date: 20211124
  Transmission Date: 20220303
  Serious: No
  Sender: FDA-Public Use
  Company Number: US-PERRIGO-21US000145

PATIENT
  Sex: Female
  Weight: 58.957 kg

DRUGS (3)
  1. POLYETHYLENE GLYCOL 3350 [Suspect]
     Active Substance: POLYETHYLENE GLYCOL 3350
     Indication: Constipation
     Dosage: 17 G, SINGLE
     Route: 048
     Dates: start: 2020, end: 2020
  2. PRENATAL VITAMINS                  /07499601/ [Concomitant]
     Indication: Supplementation therapy
     Dosage: UNK
     Route: 065
     Dates: start: 2020
  3. TYLENOL [Concomitant]
     Active Substance: ACETAMINOPHEN
     Indication: Product used for unknown indication
     Dosage: UNK
     Route: 065
     Dates: start: 2020

REACTIONS (3)
  - Abdominal pain upper [Unknown]
  - Drug ineffective [Unknown]
  - Maternal exposure during pregnancy [Recovered/Resolved]

NARRATIVE: CASE EVENT DATE: 20200101
